FAERS Safety Report 25417059 (Version 1)
Quarter: 2025Q2

REPORT INFORMATION
  Report Type: Spontaneous
  Country: US (occurrence: US)
  Receive Date: 20250610
  Receipt Date: 20250610
  Transmission Date: 20250716
  Serious: No
  Sender: Steriscience PTE
  Company Number: US-STERISCIENCE B.V.-2025-ST-000805

PATIENT
  Age: 49 Year
  Sex: Male

DRUGS (5)
  1. ONDANSETRON [Suspect]
     Active Substance: ONDANSETRON
     Indication: Nausea
     Route: 065
  2. ONDANSETRON [Suspect]
     Active Substance: ONDANSETRON
     Indication: Vomiting
  3. PEMBROLIZUMAB [Concomitant]
     Active Substance: PEMBROLIZUMAB
     Indication: Tonsil cancer
     Route: 065
     Dates: start: 202208
  4. PACLITAXEL [Concomitant]
     Active Substance: PACLITAXEL
     Indication: Tonsil cancer
     Route: 065
     Dates: start: 202208
  5. CARBOPLATIN [Concomitant]
     Active Substance: CARBOPLATIN
     Indication: Tonsil cancer
     Route: 065
     Dates: start: 202208

REACTIONS (1)
  - Drug ineffective [Unknown]
